FAERS Safety Report 13915587 (Version 1)
Quarter: 2017Q3

REPORT INFORMATION
  Report Type: Spontaneous
  Country: US (occurrence: US)
  Receive Date: 20170828
  Receipt Date: 20170828
  Transmission Date: 20171127
  Serious: No
  Sender: FDA-Public Use
  Company Number: None

PATIENT
  Age: 66 Year
  Sex: Female

DRUGS (2)
  1. BUSPAR [Suspect]
     Active Substance: BUSPIRONE HYDROCHLORIDE
     Indication: TREMOR
     Route: 048
     Dates: end: 20160821
  2. BUSPAR [Suspect]
     Active Substance: BUSPIRONE HYDROCHLORIDE
     Indication: ANXIETY
     Route: 048
     Dates: end: 20160821

REACTIONS (5)
  - Hallucination, auditory [None]
  - Abnormal behaviour [None]
  - Hallucination, visual [None]
  - Confusional state [None]
  - Soliloquy [None]
